FAERS Safety Report 4896912-5 (Version None)
Quarter: 2006Q1

REPORT INFORMATION
  Report Type: 
  Country: None (occurrence: None)
  Receive Date: 20060127
  Receipt Date: 20060118
  Transmission Date: 20060701
  Serious: Yes (Hospitalization)
  Sender: FDA-Public Use
  Company Number: 2005169546

PATIENT
  Age: 89 Year
  Sex: Female

DRUGS (3)
  1. NIFEDIPINE [Suspect]
     Indication: ESSENTIAL HYPERTENSION
     Dosage: 30 MG, ORAL
     Route: 048
     Dates: end: 20051018
  2. RHEOFLUX (TROXERUTIN) [Concomitant]
  3. CALCIDOSE (CALCIUM CARBONATE) [Concomitant]

REACTIONS (8)
  - BLOOD IMMUNOGLOBULIN A INCREASED [None]
  - C-REACTIVE PROTEIN INCREASED [None]
  - COMPLEMENT FACTOR INCREASED [None]
  - CONDITION AGGRAVATED [None]
  - LEUKOCYTOCLASTIC VASCULITIS [None]
  - NECROSIS [None]
  - PEMPHIGOID [None]
  - RED BLOOD CELL SEDIMENTATION RATE INCREASED [None]
